FAERS Safety Report 24748436 (Version 1)
Quarter: 2024Q4

REPORT INFORMATION
  Report Type: Spontaneous
  Country: US (occurrence: US)
  Receive Date: 20241218
  Receipt Date: 20241218
  Transmission Date: 20250114
  Serious: No
  Sender: GLAND PHARMA LTD
  Company Number: US-GLANDPHARMA-US-2024GLNSPO01166

PATIENT

DRUGS (2)
  1. DOXYCYCLINE [Suspect]
     Active Substance: DOXYCYCLINE
     Indication: Product used for unknown indication
     Route: 065
  2. IPROHEPTINE HYDROCHLORIDE [Suspect]
     Active Substance: IPROHEPTINE HYDROCHLORIDE
     Indication: Product used for unknown indication
     Route: 065

REACTIONS (3)
  - Dyspnoea [Unknown]
  - Hypertension [Unknown]
  - Drug hypersensitivity [Unknown]
